FAERS Safety Report 4450058-9 (Version None)
Quarter: 2004Q3

REPORT INFORMATION
  Report Type: 
  Country: None (occurrence: None)
  Receive Date: 20040915
  Receipt Date: 20040615
  Transmission Date: 20050211
  Serious: Yes (Hospitalization)
  Sender: FDA-Public Use
  Company Number: US-ROCHE-371220

PATIENT
  Age: 46 Year
  Sex: Male
  Weight: 94.3 kg

DRUGS (7)
  1. FUZEON [Suspect]
     Indication: HIV INFECTION
     Route: 058
     Dates: start: 20040101
  2. AUGMENTIN [Suspect]
     Route: 065
     Dates: end: 20040515
  3. DELAVIRDINE [Suspect]
     Indication: HIV INFECTION
     Route: 048
     Dates: start: 20040101
  4. RESCRIPTOR [Concomitant]
     Indication: HIV INFECTION
     Route: 048
     Dates: start: 20040315
  5. EMTRIVA [Concomitant]
     Indication: HIV INFECTION
     Route: 048
     Dates: start: 20030101
  6. VIREAD [Concomitant]
     Indication: HIV INFECTION
     Route: 048
     Dates: start: 20030101
  7. INVIRASE [Concomitant]
     Indication: HIV INFECTION
     Route: 048
     Dates: start: 20040101

REACTIONS (8)
  - CHILLS [None]
  - DYSPNOEA [None]
  - FATIGUE [None]
  - HAEMOLYTIC ANAEMIA [None]
  - MYALGIA [None]
  - PAIN [None]
  - PYREXIA [None]
  - SINUSITIS [None]
